FAERS Safety Report 9281774 (Version 1)
Quarter: 2013Q2

REPORT INFORMATION
  Report Type: Spontaneous
  Country: GB (occurrence: GB)
  Receive Date: 20130510
  Receipt Date: 20130510
  Transmission Date: 20140414
  Serious: Yes (Hospitalization, Other)
  Sender: FDA-Public Use
  Company Number: GB-B.I. PHARMACEUTICALS,INC./RIDGEFIELD-2013-UK-00986UK

PATIENT
  Age: 67 Year
  Sex: Male
  Weight: 78.6 kg

DRUGS (20)
  1. PRADAXA [Suspect]
     Indication: THROMBOSIS PROPHYLAXIS
     Dosage: 110 MG
     Route: 048
     Dates: start: 20130412, end: 20130417
  2. PRADAXA [Suspect]
     Dosage: 220 MG
     Route: 048
     Dates: end: 20130417
  3. ATORVASTATIN [Suspect]
     Indication: BLOOD CHOLESTEROL INCREASED
     Dates: end: 20130416
  4. AMITRIPTYLINE [Concomitant]
  5. AMOXICILLIN [Concomitant]
  6. ASPIRIN [Concomitant]
  7. BISOPROLOL [Concomitant]
  8. CO-CODAMOL [Concomitant]
  9. CODEINE PHOSPHATE [Concomitant]
  10. CYCLIZINE [Concomitant]
  11. ENOXAPARIN [Concomitant]
  12. FLUCOXACILLIN [Concomitant]
  13. GENTAMICIN [Concomitant]
  14. IPRATROPIUM BROMIDE [Concomitant]
  15. LACTULOSE [Concomitant]
  16. MORPHINE SULFATE [Concomitant]
  17. OMEPRAZOLE [Concomitant]
  18. PARACETAMOL [Concomitant]
  19. RAMIPRIL [Concomitant]
  20. SALIVA SPRAY [Concomitant]

REACTIONS (4)
  - Aspartate aminotransferase increased [Not Recovered/Not Resolved]
  - Blood alkaline phosphatase increased [Not Recovered/Not Resolved]
  - Liver function test abnormal [Not Recovered/Not Resolved]
  - Gamma-glutamyltransferase increased [Not Recovered/Not Resolved]
